FAERS Safety Report 16440928 (Version 1)
Quarter: 2019Q2

REPORT INFORMATION
  Report Type: Spontaneous
  Country: FR (occurrence: FR)
  Receive Date: 20190617
  Receipt Date: 20190617
  Transmission Date: 20190711
  Serious: Yes (Other)
  Sender: FDA-Public Use
  Company Number: FR-PFIZER INC-2019250622

PATIENT
  Age: 37 Year
  Sex: Female

DRUGS (6)
  1. XANAX [Suspect]
     Active Substance: ALPRAZOLAM
     Indication: ANXIETY
     Dosage: 2 TABLETS, 1 TABLET IN THE EVENING AND 1 TABLET AT BEDTIME
     Route: 048
  2. PARACETAMOL [Suspect]
     Active Substance: ACETAMINOPHEN
     Indication: PAIN
     Dosage: 4 G, 1X/DAY
     Route: 048
     Dates: start: 201812
  3. LYRICA [Suspect]
     Active Substance: PREGABALIN
     Dosage: 3 DF, 1X/DAY
     Route: 048
     Dates: start: 201812
  4. ACUPAN [Suspect]
     Active Substance: NEFOPAM HYDROCHLORIDE
     Indication: PAIN
     Dosage: 60 MG, 1X/DAY
     Dates: start: 201812, end: 201812
  5. SPASFON [PHLOROGLUCINOL] [Suspect]
     Active Substance: PHLOROGLUCINOL
     Indication: ABDOMINAL RIGIDITY
     Dosage: 6 DF, 1X/DAY (IF NEEDED)
     Route: 048
     Dates: start: 201812
  6. LOVENOX [Suspect]
     Active Substance: ENOXAPARIN SODIUM
     Indication: PROPHYLAXIS
     Dosage: 1 DF, 1X/DAY
     Route: 058
     Dates: start: 20181219, end: 20190102

REACTIONS (6)
  - Hepatocellular injury [Not Recovered/Not Resolved]
  - Nausea [Not Recovered/Not Resolved]
  - Pruritus [Not Recovered/Not Resolved]
  - Cholestasis [Not Recovered/Not Resolved]
  - Transaminases increased [Not Recovered/Not Resolved]
  - Jaundice [Not Recovered/Not Resolved]

NARRATIVE: CASE EVENT DATE: 20181224
